FAERS Safety Report 9397695 (Version 1)
Quarter: 2013Q3

REPORT INFORMATION
  Report Type: Spontaneous
  Country: US (occurrence: None)
  Receive Date: 20130711
  Receipt Date: 20130711
  Transmission Date: 20140515
  Serious: No
  Sender: FDA-Public Use
  Company Number: None

PATIENT
  Age: 59 Year
  Sex: Female

DRUGS (1)
  1. QSYMIA [Suspect]
     Indication: OBESITY
     Dosage: 1
     Route: 048

REACTIONS (4)
  - Constipation [None]
  - Dry mouth [None]
  - Dizziness [None]
  - Vision blurred [None]
